FAERS Safety Report 17172563 (Version 13)
Quarter: 2022Q4

REPORT INFORMATION
  Report Type: Spontaneous
  Country: IN (occurrence: IN)
  Receive Date: 20191218
  Receipt Date: 20221005
  Transmission Date: 20230113
  Serious: Yes (Other)
  Sender: FDA-Public Use
  Company Number: IN-PFIZER INC-2019096696

PATIENT
  Age: 69 Year
  Sex: Female
  Weight: 63.3 kg

DRUGS (9)
  1. PALBOCICLIB [Suspect]
     Active Substance: PALBOCICLIB
     Indication: Breast cancer metastatic
     Dosage: ONCE A DAY, 21 DAYS EVERY MONTH X 3 MONTHS
     Route: 048
     Dates: start: 20170810
  2. PALBOCICLIB [Suspect]
     Active Substance: PALBOCICLIB
     Dosage: DAILY 3 WEEK EVERY MONTH
     Route: 048
     Dates: start: 20180601
  3. PALBOCICLIB [Suspect]
     Active Substance: PALBOCICLIB
     Dosage: 1-0-0 3 WEEKS, 1 WEEK OFF 3 MONTHS
     Route: 048
     Dates: start: 20201002
  4. PALBOCICLIB [Suspect]
     Active Substance: PALBOCICLIB
     Dosage: 1-0-0, 21 DAYS ON + 1 WK OFF
     Route: 048
  5. PALBOCICLIB [Suspect]
     Active Substance: PALBOCICLIB
     Dosage: 100 MG, 1X/DAY
     Route: 048
  6. LETROZOLE [Suspect]
     Active Substance: LETROZOLE
     Dosage: 1-0-0 X 3 MTH
     Dates: start: 201708
  7. LETROZOLE [Concomitant]
     Active Substance: LETROZOLE
     Dosage: 2.5 MG
     Dates: start: 201708
  8. CCM [Concomitant]
     Dosage: UNK, 1X/DAY 0-1-0 X 3 MTH
  9. BETTER [Concomitant]

REACTIONS (8)
  - Hypertension [Recovering/Resolving]
  - Stomatitis [Recovered/Resolved]
  - Pleural effusion [Unknown]
  - Weight increased [Recovering/Resolving]
  - Dyspnoea [Unknown]
  - Haemoglobin decreased [Unknown]
  - White blood cell count decreased [Recovering/Resolving]
  - Cough [Recovered/Resolved]

NARRATIVE: CASE EVENT DATE: 20191210
